FAERS Safety Report 15553422 (Version 2)
Quarter: 2018Q4

REPORT INFORMATION
  Report Type: Report from Study
  Country: None (occurrence: US)
  Receive Date: 20181026
  Receipt Date: 20181105
  Transmission Date: 20190205
  Serious: Yes (Other)
  Sender: FDA-Public Use
  Company Number: US-ABBVIE-18S-163-2526981-00

PATIENT
  Age: 62 Year
  Sex: Male
  Weight: 91.25 kg

DRUGS (6)
  1. MULTIVITAMIN [Concomitant]
     Active Substance: VITAMINS
     Indication: VITAMIN SUPPLEMENTATION
  2. CREON [Suspect]
     Active Substance: PANCRELIPASE AMYLASE\PANCRELIPASE LIPASE\PANCRELIPASE PROTEASE
     Indication: PANCREATITIS CHRONIC
     Dosage: 2 CAPSULES WITH MEALS, 1 CAPSULE WITH SNACKS
     Route: 048
     Dates: start: 2014, end: 2016
  3. OFLOXACIN. [Concomitant]
     Active Substance: OFLOXACIN
     Indication: INFECTION PROPHYLAXIS
     Route: 047
     Dates: start: 2018, end: 2018
  4. VITAMIN D [Concomitant]
     Active Substance: CHOLECALCIFEROL
     Indication: VITAMIN SUPPLEMENTATION
  5. VITAMIN D3 [Concomitant]
     Active Substance: CHOLECALCIFEROL
     Indication: VITAMIN SUPPLEMENTATION
  6. CREON [Suspect]
     Active Substance: PANCRELIPASE AMYLASE\PANCRELIPASE LIPASE\PANCRELIPASE PROTEASE
     Dosage: 2 CAPSULES WITH MEALS AND ONE WITH SNACKS TOTAL 7 CAPSULES PER DAY
     Route: 048
     Dates: start: 20161031

REACTIONS (5)
  - Cataract [Recovered/Resolved]
  - Steatorrhoea [Recovered/Resolved]
  - Eye inflammation [Recovered/Resolved]
  - Cataract [Recovered/Resolved]
  - Weight increased [Recovered/Resolved]

NARRATIVE: CASE EVENT DATE: 2015
